FAERS Safety Report 15645741 (Version 1)
Quarter: 2018Q4

REPORT INFORMATION
  Report Type: Spontaneous
  Country: US (occurrence: US)
  Receive Date: 20181121
  Receipt Date: 20181121
  Transmission Date: 20190205
  Serious: No
  Sender: FDA-Public Use
  Company Number: US-TEIKOKU PHARMA USA-TPU2018-00689

PATIENT
  Sex: Female
  Weight: 97.61 kg

DRUGS (4)
  1. ALEVE [Concomitant]
     Active Substance: NAPROXEN SODIUM
     Indication: MUSCULOSKELETAL PAIN
     Dosage: TAKES 3 AT NIGHT AND OCCASIONALLY TAKE A COUPLE DURING THE DAY
  2. STEROID INJECTION [Concomitant]
     Active Substance: UNSPECIFIED INGREDIENT
     Indication: MUSCULOSKELETAL PAIN
     Dosage: 2 INJECTIONS IN LEFT SHOULDER
     Dates: start: 2018
  3. LIDODERM [Suspect]
     Active Substance: LIDOCAINE
     Indication: BACK PAIN
     Dosage: USES BETWEEN 1 TO 3 PATCHES AS NEEDED FOR PAIN. APPLIED WHEREVER PAIN IS, USUALLY LEFT SHOULDER (FRO
  4. LIDODERM [Suspect]
     Active Substance: LIDOCAINE
     Indication: MUSCULOSKELETAL PAIN

REACTIONS (2)
  - Prescription drug used without a prescription [Unknown]
  - Expired product administered [Not Recovered/Not Resolved]
